FAERS Safety Report 6395083-6 (Version None)
Quarter: 2009Q4

REPORT INFORMATION
  Report Type: 
  Country: None (occurrence: None)
  Receive Date: 20091009
  Receipt Date: 20091005
  Transmission Date: 20100525
  Serious: Yes (Other)
  Sender: FDA-Public Use
  Company Number: GB-EISAI INC.-E2090-00716-SPO-GB

PATIENT
  Age: 42 Year
  Sex: Female
  Weight: 80 kg

DRUGS (2)
  1. ZONEGRAN [Suspect]
     Indication: EPILEPSY
     Route: 048
     Dates: start: 20071201
  2. LEVETIRACETAM [Concomitant]
     Indication: EPILEPSY
     Route: 048
     Dates: start: 20000101

REACTIONS (7)
  - ANGER [None]
  - CONVULSION [None]
  - DISTURBANCE IN ATTENTION [None]
  - FATIGUE [None]
  - HAEMORRHAGE [None]
  - PALPITATIONS [None]
  - RASH [None]
